FAERS Safety Report 24646351 (Version 1)
Quarter: 2024Q4

REPORT INFORMATION
  Report Type: Other
  Country: GB (occurrence: GB)
  Receive Date: 20241121
  Receipt Date: 20241121
  Transmission Date: 20250114
  Serious: Yes (Other)
  Sender: MACLEODS
  Company Number: GB-MHRA-TPP7968699C970259YC1731404964515

PATIENT

DRUGS (5)
  1. CLOPIDOGREL [Suspect]
     Active Substance: CLOPIDOGREL BISULFATE
     Indication: Ill-defined disorder
     Dosage: TAKE ONE TABLET IN THE MORNING
     Route: 065
  2. STRIVIT [Concomitant]
     Indication: Ill-defined disorder
     Dosage: ONCE DAILY
     Route: 065
  3. CARBOMER [Concomitant]
     Active Substance: CARBOMER
     Indication: Ill-defined disorder
     Dosage: AS DIRECTED
     Route: 065
     Dates: start: 20230915
  4. ATORVASTATIN [Concomitant]
     Active Substance: ATORVASTATIN
     Indication: Ill-defined disorder
     Dosage: TAKE ONE TABLET EACH NIGHT
     Route: 065
  5. LANSOPRAZOLE [Concomitant]
     Active Substance: LANSOPRAZOLE
     Indication: Ill-defined disorder
     Dosage: TAKE ONE ONCE DAILY
     Route: 065

REACTIONS (2)
  - Hypertension [Recovered/Resolved]
  - Contusion [Recovered/Resolved]
